FAERS Safety Report 9681406 (Version 5)
Quarter: 2013Q4

REPORT INFORMATION
  Report Type: Report from Study
  Country: US (occurrence: US)
  Receive Date: 20131111
  Receipt Date: 20131227
  Transmission Date: 20140711
  Serious: Yes (Hospitalization)
  Sender: FDA-Public Use
  Company Number: US-SA-2013SA111233

PATIENT
  Age: 14 Year
  Sex: Male
  Weight: 47.6 kg

DRUGS (23)
  1. SEVELAMER CARBONATE [Suspect]
     Indication: HYPERPHOSPHATAEMIA
     Dosage: 4 TABLETS (800 MG), TID WITH MEALS OR SNACKS
     Route: 048
     Dates: start: 20130611, end: 20130612
  2. SEVELAMER CARBONATE [Suspect]
     Indication: HYPERPHOSPHATAEMIA
     Route: 048
     Dates: start: 20130612, end: 20130628
  3. SEVELAMER CARBONATE [Suspect]
     Indication: HYPERPHOSPHATAEMIA
     Route: 048
     Dates: start: 20130628, end: 20131113
  4. AMLODIPINE [Concomitant]
     Indication: HYPERTENSION
     Route: 048
     Dates: start: 20130808, end: 20130910
  5. AMLODIPINE [Concomitant]
     Indication: HYPERTENSION
     Route: 048
     Dates: start: 20130427, end: 20130620
  6. HEPATITIS B VACCINE [Concomitant]
     Route: 030
     Dates: start: 20130806, end: 20130806
  7. HEPARIN [Concomitant]
     Indication: HYPERPHOSPHATAEMIA
     Dosage: DOSE:5000 UNIT(S)
     Route: 042
     Dates: start: 20130413
  8. EPOETIN ALFA [Concomitant]
     Indication: ANAEMIA
     Dosage: DOSE:2200 UNIT(S)
     Route: 042
     Dates: start: 20131005
  9. EPOETIN ALFA [Concomitant]
     Indication: ANAEMIA
     Dosage: DOSE:2800 UNIT(S)
     Route: 042
     Dates: start: 20130813, end: 20131003
  10. EPOETIN ALFA [Concomitant]
     Indication: ANAEMIA
     Dosage: DOSE:2200 UNIT(S)
     Route: 042
     Dates: start: 20130415, end: 20130810
  11. LISINOPRIL [Concomitant]
     Indication: HYPERTENSION
     Route: 048
     Dates: start: 20130511
  12. NEPHROCAPS [Concomitant]
     Indication: RENAL FAILURE CHRONIC
     Route: 048
     Dates: start: 20130413
  13. OMEPRAZOLE [Concomitant]
     Indication: DIALYSIS
     Route: 048
     Dates: start: 20130412
  14. SODIUM FERRIC GLUCONATE COMPLEX [Concomitant]
     Indication: IRON DEFICIENCY
     Route: 042
     Dates: start: 20130513
  15. ALTEPLASE [Concomitant]
     Indication: DEVICE OCCLUSION
     Route: 042
     Dates: start: 20130502
  16. ONDANSETRON [Concomitant]
     Indication: NAUSEA
     Dosage: 4 MG ON 29-OCT-2013
     Route: 042
     Dates: start: 20130412
  17. IBUPROFEN [Concomitant]
     Indication: HEADACHE
     Route: 048
     Dates: start: 20130528
  18. IBUPROFEN [Concomitant]
     Indication: MIGRAINE
     Route: 048
     Dates: start: 20130528
  19. CALCITRIOL [Concomitant]
     Indication: HYPERPARATHYROIDISM SECONDARY
     Route: 048
     Dates: start: 20130614
  20. ACETAMINOPHEN [Concomitant]
     Indication: HEADACHE
     Dosage: 325-625 MG PRN?650 MG ON 29-OCT-2013?LAST ADMINISTRATION AT 500 MG ON 30-10-13
     Route: 048
     Dates: start: 20130730
  21. ACETAMINOPHEN [Concomitant]
     Indication: PYREXIA
     Dosage: 325-625 MG PRN?650 MG ON 29-OCT-2013?LAST ADMINISTRATION AT 500 MG ON 30-10-13
     Route: 048
     Dates: start: 20130730
  22. TYLENOL [Concomitant]
     Indication: TOOTHACHE
     Route: 065
  23. CLINDAMYCIN [Concomitant]
     Indication: PROPHYLAXIS
     Route: 048

REACTIONS (1)
  - Gastritis [Recovered/Resolved]
